FAERS Safety Report 8029049-7 (Version None)
Quarter: 2012Q1

REPORT INFORMATION
  Report Type: 
  Country: None (occurrence: None)
  Receive Date: 20120106
  Receipt Date: 20111227
  Transmission Date: 20120608
  Serious: Yes (Death)
  Sender: FDA-Public Use
  Company Number: US-JNJFOC-20111212489

PATIENT
  Age: 38 Year
  Sex: Female

DRUGS (1)
  1. ACETAMINOPHEN/DIPHENHYDRAMINE [Suspect]
     Indication: SUICIDE ATTEMPT
     Dosage: 90
     Route: 048

REACTIONS (8)
  - INTENTIONAL OVERDOSE [None]
  - ENCEPHALOPATHY [None]
  - GASTROINTESTINAL NECROSIS [None]
  - TOXICITY TO VARIOUS AGENTS [None]
  - HYPERTENSION [None]
  - INTESTINAL PERFORATION [None]
  - HYPOTENSION [None]
  - CARDIAC ARREST [None]
